FAERS Safety Report 4406849-3 (Version None)
Quarter: 2004Q3

REPORT INFORMATION
  Report Type: 
  Country: None (occurrence: None)
  Receive Date: 20040723
  Receipt Date: 20040717
  Transmission Date: 20050211
  Serious: Yes (Death)
  Sender: FDA-Public Use
  Company Number: AE-MERCK-0407USA01403

PATIENT
  Age: 53 Year

DRUGS (3)
  1. [THERAPY UNSPECIFIED] [Concomitant]
     Route: 065
  2. CANCIDAS [Suspect]
     Indication: CANDIDIASIS
     Route: 042
     Dates: start: 20031120
  3. CANCIDAS [Suspect]
     Route: 042
     Dates: end: 20031205

REACTIONS (1)
  - BACTERIAL SEPSIS [None]
